FAERS Safety Report 16070666 (Version 1)
Quarter: 2019Q1

REPORT INFORMATION
  Report Type: Spontaneous
  Country: DE (occurrence: DE)
  Receive Date: 20190314
  Receipt Date: 20190314
  Transmission Date: 20190418
  Serious: Yes (Hospitalization, Other)
  Sender: FDA-Public Use
  Company Number: DE-AUROBINDO-AUR-APL-2019-012749

PATIENT
  Sex: Male
  Weight: 120 kg

DRUGS (29)
  1. 5-FLUOROURACIL [Concomitant]
     Active Substance: FLUOROURACIL
     Dosage: 1600 MILLIGRAM, 2 WEEK, 2 DAYS IN A ROW
     Route: 040
     Dates: start: 20130703, end: 20130703
  2. METOCLOPRAMID [Concomitant]
     Active Substance: METOCLOPRAMIDE
     Dosage: 30 MILLIGRAM, DAILY
     Route: 048
     Dates: start: 20130718, end: 20130720
  3. METOCLOPRAMID [Concomitant]
     Active Substance: METOCLOPRAMIDE
     Dosage: 30 MILLIGRAM, DAILY
     Route: 048
     Dates: start: 20131120, end: 20131121
  4. BEVACIZUMAB. [Suspect]
     Active Substance: BEVACIZUMAB
     Indication: COLORECTAL CANCER
     Dosage: 600 MILLIGRAM, 2 WEEK
     Route: 042
     Dates: start: 20130911
  5. BEVACIZUMAB. [Suspect]
     Active Substance: BEVACIZUMAB
     Dosage: 590 MILLIGRAM, 2 WEEK
     Route: 042
     Dates: start: 20130705
  6. METOCLOPRAMID [Concomitant]
     Active Substance: METOCLOPRAMIDE
     Indication: VOMITING
     Dosage: 30 MILLIGRAM, DAILY
     Route: 048
     Dates: start: 20131023, end: 20131024
  7. METOCLOPRAMID [Concomitant]
     Active Substance: METOCLOPRAMIDE
     Dosage: 30 MILLIGRAM, DAILY
     Route: 048
     Dates: start: 20131204, end: 20131205
  8. METOCLOPRAMID [Concomitant]
     Active Substance: METOCLOPRAMIDE
     Dosage: 30 MILLIGRAM, DAILY
     Route: 048
     Dates: start: 20130911, end: 20130911
  9. ONDANSETRON [Concomitant]
     Active Substance: ONDANSETRON
     Dosage: 8 MILLIGRAM, DAILY, 2 DAYS IN A ROW EVERY 2 WEEKS
     Route: 048
     Dates: start: 20130815, end: 20131205
  10. 5-FLUOROURACIL [Concomitant]
     Active Substance: FLUOROURACIL
     Indication: COLORECTAL CANCER
     Dosage: 4800 MILLIGRAM, 2 WEEK, 2 DAYS IN A ROW
     Route: 041
     Dates: start: 20130704, end: 20130705
  11. METOCLOPRAMID [Concomitant]
     Active Substance: METOCLOPRAMIDE
     Dosage: 30 MILLIGRAM, DAILY
     Route: 048
     Dates: start: 20130828, end: 20130829
  12. KEVATRIL [Concomitant]
     Active Substance: GRANISETRON HYDROCHLORIDE
     Indication: VOMITING
     Dosage: 1 MILLIGRAM, DAILY, 2 DAYS IN A ROW EVERY 2 WEEKS
     Route: 042
     Dates: start: 20130815, end: 20131205
  13. METOCLOPRAMID [Concomitant]
     Active Substance: METOCLOPRAMIDE
     Dosage: 30 MILLIGRAM, DAILY
     Route: 048
     Dates: start: 20130815, end: 20130816
  14. METOCLOPRAMID [Concomitant]
     Active Substance: METOCLOPRAMIDE
     Dosage: 30 MILLIGRAM, DAILY
     Route: 048
     Dates: start: 20130703, end: 20130706
  15. METOCLOPRAMID [Concomitant]
     Active Substance: METOCLOPRAMIDE
     Dosage: 30 MILLIGRAM, DAILY
     Route: 048
     Dates: start: 20131106, end: 20131107
  16. DEXAMETHASON [Concomitant]
     Active Substance: DEXAMETHASONE
     Indication: VOMITING
     Dosage: 8 MILLIGRAM, DAILY, 2 DAYS IN A ROW EVERY 2 WEEKS
     Route: 042
     Dates: start: 20130815, end: 20131205
  17. ONDANSETRON [Concomitant]
     Active Substance: ONDANSETRON
     Dosage: 8 MILLIGRAM, DAILY
     Route: 048
     Dates: start: 20130703
  18. AMLODIPINE [Concomitant]
     Active Substance: AMLODIPINE BESYLATE
     Indication: HYPERTENSION
     Dosage: 5 MILLIGRAM, DAILY
     Route: 048
     Dates: start: 20130731, end: 20150328
  19. DALTEPARIN SODIUM [Concomitant]
     Active Substance: DALTEPARIN SODIUM
     Indication: VENOUS THROMBOSIS
     Dosage: 5000 INTERNATIONAL UNIT, DAILY
     Route: 058
     Dates: start: 20130718, end: 20130722
  20. DALTEPARIN SODIUM [Concomitant]
     Active Substance: DALTEPARIN SODIUM
     Indication: PULMONARY EMBOLISM
     Dosage: 5000 INTERNATIONAL UNIT, DAILY
     Route: 058
     Dates: start: 20130731, end: 20130804
  21. FOLINIC ACID [Concomitant]
     Active Substance: LEUCOVORIN
     Indication: COLORECTAL CANCER
     Dosage: 800 MILLIGRAM, 2 WEEK, 2 DAYS IN A ROW
     Route: 042
     Dates: start: 20130703
  22. 5-FLUOROURACIL [Concomitant]
     Active Substance: FLUOROURACIL
     Dosage: 2400 MILLIGRAM, 2 WEEK, 2 DAYS IN A ROW
     Route: 041
     Dates: start: 20130703
  23. METOCLOPRAMID [Concomitant]
     Active Substance: METOCLOPRAMIDE
     Dosage: 30 GTT DROPS
     Route: 048
     Dates: start: 20130805, end: 20131231
  24. METOCLOPRAMID [Concomitant]
     Active Substance: METOCLOPRAMIDE
     Dosage: 30 MILLIGRAM, DAILY
     Route: 048
     Dates: start: 20131009, end: 20131010
  25. OXALIPLATIN. [Suspect]
     Active Substance: OXALIPLATIN
     Indication: COLORECTAL CANCER
     Dosage: 170 MILLIGRAM, 2 WEEK
     Route: 042
     Dates: start: 20130703
  26. FOLINIC ACID [Concomitant]
     Active Substance: LEUCOVORIN
     Dosage: 800 MILLIGRAM, 2 WEEK, 2 DAYS IN A ROW
     Route: 042
     Dates: start: 20130705
  27. 5-FLUOROURACIL [Concomitant]
     Active Substance: FLUOROURACIL
     Dosage: 1600 MILLIGRAM, 2 WEEK, 2 DAYS IN A ROW
     Route: 040
     Dates: start: 20130705
  28. METOCLOPRAMID [Concomitant]
     Active Substance: METOCLOPRAMIDE
     Dosage: 30 MILLIGRAM, DAILY
     Route: 048
     Dates: start: 20130925, end: 20130926
  29. ONDANSETRON [Concomitant]
     Active Substance: ONDANSETRON
     Indication: VOMITING
     Dosage: 8 MILLIGRAM, DAILY
     Route: 048
     Dates: start: 20130718, end: 20130720

REACTIONS (5)
  - Hypertension [Unknown]
  - Tumour pain [Recovered/Resolved]
  - Neuropathy peripheral [Recovered/Resolved]
  - Device related sepsis [Recovered/Resolved]
  - Colitis [Unknown]

NARRATIVE: CASE EVENT DATE: 20130718
